FAERS Safety Report 9469932 (Version 2)
Quarter: 2013Q3

REPORT INFORMATION
  Report Type: Spontaneous
  Country: MY (occurrence: MY)
  Receive Date: 20130822
  Receipt Date: 20130822
  Transmission Date: 20140515
  Serious: Yes (Other)
  Sender: FDA-Public Use
  Company Number: MY-MERCK-1308MYS006042

PATIENT
  Age: 67 Year
  Sex: Female

DRUGS (5)
  1. TIENAM [Suspect]
     Indication: BURKHOLDERIA PSEUDOMALLEI INFECTION
     Dosage: 500 MG, Q12H
     Route: 042
  2. METOCLOPRAMIDE [Concomitant]
     Dosage: 10 MG, Q8H
     Route: 042
  3. ERYTHROMYCIN ETHYLSUCCINATE [Concomitant]
     Dosage: 250 MG, Q8H
     Route: 042
  4. OSELTAMIVIR [Concomitant]
     Dosage: 150 MG, QD
     Route: 048
  5. CEFEPIME [Concomitant]
     Dosage: 2 G STAT FOLLOWED BY 1 G EVERY 12 HOURLY

REACTIONS (3)
  - Convulsion [Recovered/Resolved]
  - Neurotoxicity [Unknown]
  - Drug administration error [Unknown]
